FAERS Safety Report 8157627-3 (Version None)
Quarter: 2012Q1

REPORT INFORMATION
  Report Type: 
  Country: None (occurrence: None)
  Receive Date: 20120222
  Receipt Date: 20120216
  Transmission Date: 20120608
  Serious: Yes (Death, Hospitalization)
  Sender: FDA-Public Use
  Company Number: US-CELGENEUS-163-21880-12021994

PATIENT
  Sex: Male

DRUGS (4)
  1. VELCADE [Concomitant]
     Indication: MULTIPLE MYELOMA
     Route: 065
  2. REVLIMID [Suspect]
     Indication: MULTIPLE MYELOMA
     Dosage: 10 MILLIGRAM
     Route: 048
     Dates: start: 20110521, end: 20110606
  3. DEXAMETHASONE [Concomitant]
     Indication: MULTIPLE MYELOMA
     Route: 065
  4. VIDAZA [Suspect]
     Indication: MULTIPLE MYELOMA
     Dosage: 75 MILLIGRAM/SQ. METER
     Route: 058
     Dates: start: 20110516, end: 20110520

REACTIONS (3)
  - RENAL FAILURE ACUTE [None]
  - MULTIPLE MYELOMA [None]
  - DYSPNOEA [None]
